FAERS Safety Report 5422314-9 (Version None)
Quarter: 2007Q3

REPORT INFORMATION
  Report Type: 
  Country: None (occurrence: None)
  Receive Date: 20070820
  Receipt Date: 20070807
  Transmission Date: 20080115
  Serious: Yes (Hospitalization)
  Sender: FDA-Public Use
  Company Number: 17229

PATIENT
  Age: 10 Year
  Sex: Male

DRUGS (1)
  1. VINCRISTINE [Suspect]
     Indication: FIBROMATOSIS
     Dosage: 2 MG WEEKLY IV
     Route: 042
     Dates: start: 20070522

REACTIONS (6)
  - ABASIA [None]
  - COORDINATION ABNORMAL [None]
  - FALL [None]
  - PERIPHERAL MOTOR NEUROPATHY [None]
  - PERIPHERAL SENSORY NEUROPATHY [None]
  - TRANSAMINASES INCREASED [None]
